FAERS Safety Report 7200138-X (Version None)
Quarter: 2010Q4

REPORT INFORMATION
  Report Type: 
  Country: None (occurrence: None)
  Receive Date: 20101228
  Receipt Date: 20101220
  Transmission Date: 20110411
  Serious: Yes (Other)
  Sender: FDA-Public Use
  Company Number: US-JNJFOC-20101207426

PATIENT
  Sex: Female

DRUGS (2)
  1. ACETAMINOPHEN [Suspect]
     Route: 048
  2. ACETAMINOPHEN [Suspect]
     Indication: PYREXIA
     Dosage: 1 OR 2 PILLS EVERY 4 HOURS IN 1975 OR 1976
     Route: 048

REACTIONS (3)
  - DRUG INEFFECTIVE [None]
  - LUNG INFECTION [None]
  - PYREXIA [None]
